FAERS Safety Report 16116833 (Version 3)
Quarter: 2019Q2

REPORT INFORMATION
  Report Type: Spontaneous
  Country: FR (occurrence: FR)
  Receive Date: 20190326
  Receipt Date: 20190408
  Transmission Date: 20190711
  Serious: Yes (Hospitalization)
  Sender: FDA-Public Use
  Company Number: FR-ZYDUS-034933

PATIENT
  Age: 54 Year
  Sex: Female
  Weight: 56 kg

DRUGS (17)
  1. NEFOPAM [Concomitant]
     Active Substance: NEFOPAM
     Indication: PAIN
     Dosage: SOLUTION INJECTABLE
     Route: 042
     Dates: start: 20170127
  2. VENLAFAXINE [Concomitant]
     Active Substance: VENLAFAXINE HYDROCHLORIDE
     Indication: MAJOR DEPRESSION
     Dosage: 37.5 MG IN THE MORNING AND 75 MG IN THE EVENING
     Route: 048
  3. ENOXAPARIN [Concomitant]
     Active Substance: ENOXAPARIN
     Indication: THROMBOSIS PROPHYLAXIS
     Dosage: 0.4 ML, QD ,ANTI-XA/0.4 ML
     Route: 058
  4. CALCIUM GLUCONATE/MAGNESIUM CHLORIDE ANHYDROUS/POTASSIUM ACETATE/SODIUM CHLORIDE [Concomitant]
     Indication: PRODUCT USED FOR UNKNOWN INDICATION
     Route: 065
  5. OLIMEL [Concomitant]
     Active Substance: AMINO ACIDS\DEXTROSE\SOYBEAN OIL
     Indication: DRUG USE DISORDER
     Dosage: N7E, EMULSION FOR INFUSION
  6. PARACETAMOL [Concomitant]
     Active Substance: ACETAMINOPHEN
     Indication: PAIN
     Route: 048
  7. OXYCODONE [Concomitant]
     Active Substance: OXYCODONE
     Indication: PAIN
     Route: 048
     Dates: start: 20170127
  8. TRAMADOL. [Suspect]
     Active Substance: TRAMADOL
     Indication: PAIN
     Dosage: 1000 MG LP IN THE MORNING AND 20 MG IN THE MORNING
     Route: 048
     Dates: end: 2017
  9. AMIKACIN. [Concomitant]
     Active Substance: AMIKACIN
     Indication: BACTERAEMIA
     Route: 042
     Dates: start: 20170127, end: 20170130
  10. AMOXICILLIN/CLAVULANIC ACID [Suspect]
     Active Substance: AMOXICILLIN\CLAVULANIC ACID
     Indication: BACTERAEMIA
     Route: 042
     Dates: start: 20170131, end: 201702
  11. PANTOPRAZOLE [Concomitant]
     Active Substance: PANTOPRAZOLE
     Indication: GASTROOESOPHAGEAL REFLUX DISEASE
     Dosage: 1 DF, QD (EVENING)
     Route: 048
  12. ZOLPIDEM [Concomitant]
     Active Substance: ZOLPIDEM\ZOLPIDEM TARTRATE
     Indication: INSOMNIA
     Dosage: 10 MG, SCORED FILM-COATED TABLET?1 DF, QPM
     Route: 048
     Dates: end: 2017
  13. ASCORBIC ACID/BIOTIN/CO CARBOXYLASE 4 WASSER/COLECALCIFEROL/CYANOCOBALAMIN/DEXPANTHENOL/FOLIC ACID/N [Concomitant]
     Indication: PRODUCT USED FOR UNKNOWN INDICATION
     Route: 065
  14. CEFTOBIPROL/CEFTOBIPROLBEDOCARIL/CEFTOBIPROLBEDOCARIL-NARTIUM [Concomitant]
     Indication: BACTERAEMIA
     Route: 042
     Dates: start: 20170127, end: 20170130
  15. DAPTOMYCIN. [Suspect]
     Active Substance: DAPTOMYCIN
     Indication: BACTERAEMIA
     Dosage: 500 MG POWDER FOR CONCENTRATE FOR SOLUTION FOR INFUSION
     Route: 042
     Dates: start: 20170131, end: 201702
  16. GLUCOSE 1-PHOSPHATE DISODIUM [Concomitant]
     Active Substance: .ALPHA.-GLUCOSE-1-PHOSPHATE
     Indication: PRODUCT USED FOR UNKNOWN INDICATION
     Dosage: CONCENTRATE FOR SOLUTION FOR INFUSION
  17. NUTRYELT [Concomitant]
     Active Substance: IRON\MINERALS\POTASSIUM IOD\SODIUM FLUORIDE\SODIUM MOLYBDATE\SODIUM SELENITE\ZINC
     Indication: PRODUCT USED FOR UNKNOWN INDICATION

REACTIONS (3)
  - Thrombocytopenia [Recovered/Resolved]
  - White blood cell count decreased [None]
  - Liver function test abnormal [None]

NARRATIVE: CASE EVENT DATE: 20170214
